FAERS Safety Report 16835969 (Version 4)
Quarter: 2019Q3

REPORT INFORMATION
  Report Type: Spontaneous
  Country: DE (occurrence: DE)
  Receive Date: 20190920
  Receipt Date: 20190927
  Transmission Date: 20191005
  Serious: Yes (Life-Threatening, Hospitalization, Other)
  Sender: FDA-Public Use
  Company Number: PHHY2019DE218384

PATIENT
  Age: 43 Year
  Sex: Female

DRUGS (7)
  1. FORMOTEROL FUMARATE [Concomitant]
     Active Substance: FORMOTEROL FUMARATE
     Indication: ASTHMA
     Dosage: 658 UG, QD
     Route: 055
  2. IBUPROFEN. [Suspect]
     Active Substance: IBUPROFEN
     Indication: SUICIDAL IDEATION
     Dosage: UNK
     Route: 065
  3. QUETIAPINE. [Suspect]
     Active Substance: QUETIAPINE
     Indication: SUICIDAL IDEATION
     Dosage: UNK
     Route: 065
  4. TIOTROPIUM [Concomitant]
     Active Substance: TIOTROPIUM
     Indication: ASTHMA
     Dosage: UNK
     Route: 065
  5. PREDNISOLONE. [Suspect]
     Active Substance: PREDNISOLONE
     Indication: RESPIRATORY ACIDOSIS
     Dosage: 500 MG, QID
     Route: 065
  6. MEPOLIZUMAB [Suspect]
     Active Substance: MEPOLIZUMAB
     Indication: ASTHMA
     Dosage: 100 MG, UNK
     Route: 058
  7. BUDESONIDE. [Concomitant]
     Active Substance: BUDESONIDE
     Indication: ASTHMA
     Dosage: 200 UG, BID
     Route: 055

REACTIONS (13)
  - Eosinophil percentage increased [Recovered/Resolved]
  - Pyrexia [Recovered/Resolved]
  - Suicide attempt [Unknown]
  - Inflammatory marker increased [Recovered/Resolved]
  - Toxicity to various agents [Recovered/Resolved]
  - Lung infiltration [Recovered/Resolved]
  - Body temperature increased [Recovered/Resolved]
  - Status asthmaticus [Recovered/Resolved]
  - Asthma [Recovered/Resolved]
  - Drug ineffective [Unknown]
  - Respiratory acidosis [Recovered/Resolved]
  - Off label use [Unknown]
  - Suicidal ideation [Unknown]
